FAERS Safety Report 5908782-4 (Version None)
Quarter: 2008Q4

REPORT INFORMATION
  Report Type: 
  Country: None (occurrence: None)
  Receive Date: 20081006
  Receipt Date: 20080926
  Transmission Date: 20090506
  Serious: Yes (Other)
  Sender: FDA-Public Use
  Company Number: PHBS2008GB05856

PATIENT
  Age: 49 Year
  Sex: Male

DRUGS (2)
  1. MYCOPHENOLATE MOFETIL [Suspect]
     Indication: CONJUNCTIVITIS
     Dosage: UNK
     Dates: start: 20040401
  2. DAPSONE [Suspect]
     Indication: CONJUNCTIVITIS
     Dosage: UNK
     Dates: start: 20030901

REACTIONS (7)
  - BACTERIAL CULTURE POSITIVE [None]
  - CATARACT OPERATION [None]
  - CORNEAL PERFORATION [None]
  - EYE INFECTION STAPHYLOCOCCAL [None]
  - KERATITIS BACTERIAL [None]
  - PNEUMONIA STREPTOCOCCAL [None]
  - POSTERIOR CAPSULOTOMY [None]
